FAERS Safety Report 5136046-8 (Version None)
Quarter: 2006Q4

REPORT INFORMATION
  Report Type: 
  Country: None (occurrence: None)
  Receive Date: 20061020
  Receipt Date: 20061011
  Transmission Date: 20070319
  Serious: Yes (Hospitalization)
  Sender: FDA-Public Use
  Company Number: 220002M06SWE

PATIENT
  Age: 16 Year
  Sex: Male
  Weight: 65 kg

DRUGS (2)
  1. SAIZEN [Suspect]
     Indication: ILL-DEFINED DISORDER
     Dosage: 42 IU, 1 IN 1 WEEKS
     Dates: start: 19940907
  2. LEVOTHYROXINE SODIUM [Concomitant]

REACTIONS (1)
  - IRON DEFICIENCY ANAEMIA [None]
